FAERS Safety Report 5625217-X (Version None)
Quarter: 2008Q1

REPORT INFORMATION
  Report Type: 
  Country: None (occurrence: None)
  Receive Date: 20080208
  Receipt Date: 20080130
  Transmission Date: 20080703
  Serious: No
  Sender: FDA-Public Use
  Company Number: LTI2007A00255

PATIENT
  Age: 56 Year
  Sex: Male

DRUGS (3)
  1. ACTOS [Suspect]
     Indication: TYPE 2 DIABETES MELLITUS
     Dosage: 30 MG (30 MG, 1 IN 1 D) ORAL; 30 MG (30 MG, 1 IN 1 D) ORAL
     Route: 048
     Dates: start: 20070501, end: 20070901
  2. ACTOS [Suspect]
     Indication: TYPE 2 DIABETES MELLITUS
     Dosage: 30 MG (30 MG, 1 IN 1 D) ORAL; 30 MG (30 MG, 1 IN 1 D) ORAL
     Route: 048
     Dates: start: 20071101
  3. ATORVASTATIN CALCIUM [Concomitant]

REACTIONS (3)
  - COUGH [None]
  - PYREXIA [None]
  - SINUSITIS [None]
